FAERS Safety Report 6655212-3 (Version None)
Quarter: 2010Q1

REPORT INFORMATION
  Report Type: 
  Country: None (occurrence: None)
  Receive Date: 20100317
  Receipt Date: 20100211
  Transmission Date: 20100710
  Serious: No
  Sender: FDA-Public Use
  Company Number: DSA_42605_2010

PATIENT
  Sex: Male

DRUGS (1)
  1. XENAZINE [Suspect]
     Indication: DRUG USE FOR UNKNOWN INDICATION
     Dosage: (50 MG, 12.5 MG (2 IN AM, 1 AT NOON, 1 AT BEDTIME) ORAL)
     Route: 048
     Dates: start: 20091223

REACTIONS (1)
  - PAIN IN EXTREMITY [None]
